FAERS Safety Report 6662559-3 (Version None)
Quarter: 2010Q1

REPORT INFORMATION
  Report Type: 
  Country: None (occurrence: None)
  Receive Date: 20100329
  Receipt Date: 20100312
  Transmission Date: 20100710
  Serious: Yes (Other)
  Sender: FDA-Public Use
  Company Number: CN-JNJFOC-20100303884

PATIENT
  Age: 78 Year
  Sex: Male

DRUGS (1)
  1. DACOGEN [Suspect]
     Indication: MYELODYSPLASTIC SYNDROME
     Dosage: 35 MG, 4 IN 1 DAY, INTRAVENOUS
     Route: 042
     Dates: start: 20091015, end: 20091019

REACTIONS (1)
  - INFECTION [None]
